FAERS Safety Report 7938328-0 (Version None)
Quarter: 2011Q4

REPORT INFORMATION
  Report Type: 
  Country: None (occurrence: None)
  Receive Date: 20111123
  Receipt Date: 20111114
  Transmission Date: 20120403
  Serious: Yes (Hospitalization, Other)
  Sender: FDA-Public Use
  Company Number: US-ASTRAZENECA-2011SE36199

PATIENT
  Age: 55 Year
  Sex: Female

DRUGS (11)
  1. LOVAZA [Concomitant]
     Indication: BLOOD TRIGLYCERIDES ABNORMAL
  2. LORTAB [Concomitant]
     Indication: PAIN
  3. POTASSIUM [Concomitant]
  4. NEXIUM [Suspect]
     Route: 048
  5. LEVOTHYROXINE SODIUM [Concomitant]
     Indication: THYROID DISORDER
  6. PRILOSEC [Suspect]
     Route: 048
  7. LASIX [Concomitant]
     Indication: OEDEMA
  8. SIMVASTATIN [Concomitant]
     Indication: BLOOD CHOLESTEROL ABNORMAL
  9. AVINZA [Concomitant]
     Indication: PAIN
  10. NEXIUM [Suspect]
     Route: 048
  11. METFORMIN [Concomitant]
     Indication: DIABETES MELLITUS

REACTIONS (16)
  - DYSPEPSIA [None]
  - INSOMNIA [None]
  - DYSPHONIA [None]
  - AMNESIA [None]
  - NECK PAIN [None]
  - ADVERSE EVENT [None]
  - DRUG EFFECT DECREASED [None]
  - BARRETT'S OESOPHAGUS [None]
  - DRUG DOSE OMISSION [None]
  - ROAD TRAFFIC ACCIDENT [None]
  - UPPER LIMB FRACTURE [None]
  - CARDIAC ASSISTANCE DEVICE USER [None]
  - DYSPNOEA [None]
  - SPINAL FRACTURE [None]
  - DISABILITY [None]
  - INAPPROPRIATE SCHEDULE OF DRUG ADMINISTRATION [None]
